FAERS Safety Report 8184663-3 (Version None)
Quarter: 2012Q1

REPORT INFORMATION
  Report Type: 
  Country: None (occurrence: None)
  Receive Date: 20120210
  Receipt Date: 20110426
  Transmission Date: 20120608
  Serious: Yes (Death)
  Sender: FDA-Public Use
  Company Number: DAV-AE-MTX-11-034

PATIENT
  Sex: Female

DRUGS (2)
  1. BONIVA [Concomitant]
  2. METHOTREXATE [Suspect]
     Indication: RHEUMATOID ARTHRITIS
     Dosage: 15 MG/1X/WK

REACTIONS (1)
  - IMMUNE SYSTEM DISORDER [None]
